FAERS Safety Report 9330229 (Version 1)
Quarter: 2013Q2

REPORT INFORMATION
  Report Type: Spontaneous
  Country: MX (occurrence: MX)
  Receive Date: 20130604
  Receipt Date: 20130604
  Transmission Date: 20140414
  Serious: Yes (Death)
  Sender: FDA-Public Use
  Company Number: MX-PFIZER INC-2013169771

PATIENT
  Age: 80 Year
  Sex: Female
  Weight: 63 kg

DRUGS (8)
  1. LYRICA [Suspect]
     Indication: FIBROMYALGIA
     Dosage: 150 MG, 1X/DAY
     Route: 048
     Dates: start: 2006
  2. REVATHIO [Suspect]
     Indication: PULMONARY HYPERTENSION
     Dosage: 20 MG, 3X/DAY
     Route: 048
     Dates: start: 2011
  3. REVATHIO [Suspect]
     Dosage: 20 MG, 3X/DAY
     Route: 048
  4. ALDACTONE [Suspect]
  5. EFEXOR [Suspect]
  6. ASPIRINA [Concomitant]
  7. PANTOZOL [Concomitant]
  8. MODIODAL [Concomitant]

REACTIONS (1)
  - Death [Fatal]
